FAERS Safety Report 13884553 (Version 4)
Quarter: 2017Q4

REPORT INFORMATION
  Report Type: Report from Study
  Country: None (occurrence: US)
  Receive Date: 20170821
  Receipt Date: 20171218
  Transmission Date: 20180320
  Serious: Yes (Hospitalization, Other)
  Sender: FDA-Public Use
  Company Number: US-ABBVIE-17K-163-1973409-00

PATIENT
  Age: 59 Year
  Sex: Female

DRUGS (1)
  1. HUMIRA [Suspect]
     Active Substance: ADALIMUMAB
     Indication: COLITIS ULCERATIVE
     Route: 058
     Dates: start: 20160126

REACTIONS (19)
  - Oesophagitis [Unknown]
  - Fibromyalgia [Unknown]
  - Dizziness [Unknown]
  - Liver disorder [Not Recovered/Not Resolved]
  - Rectal haemorrhage [Unknown]
  - Autoimmune disorder [Not Recovered/Not Resolved]
  - Colitis ulcerative [Recovered/Resolved]
  - Rheumatoid arthritis [Not Recovered/Not Resolved]
  - Hypophagia [Recovered/Resolved]
  - Insomnia [Not Recovered/Not Resolved]
  - Haematochezia [Unknown]
  - Lyme disease [Not Recovered/Not Resolved]
  - Nausea [Unknown]
  - Vomiting [Unknown]
  - Hepatic cirrhosis [Unknown]
  - Sleep apnoea syndrome [Unknown]
  - Lyme disease [Recovered/Resolved]
  - Colitis ulcerative [Not Recovered/Not Resolved]
  - Drug ineffective [Unknown]

NARRATIVE: CASE EVENT DATE: 201607
